FAERS Safety Report 16305415 (Version 2)
Quarter: 2021Q1

REPORT INFORMATION
  Report Type: Spontaneous
  Country: US (occurrence: US)
  Receive Date: 20190513
  Receipt Date: 20210226
  Transmission Date: 20210419
  Serious: Yes (Death, Other)
  Sender: FDA-Public Use
  Company Number: US-ASTRAZENECA-2019SE63882

PATIENT
  Age: 29 Year
  Sex: Male

DRUGS (28)
  1. LANTUS [Concomitant]
     Active Substance: INSULIN GLARGINE
  2. PROTONIX [Suspect]
     Active Substance: PANTOPRAZOLE SODIUM
     Indication: GASTROOESOPHAGEAL REFLUX DISEASE
     Route: 065
     Dates: start: 2010, end: 2014
  3. BENICAR [Concomitant]
     Active Substance: OLMESARTAN MEDOXOMIL
  4. FUROSEMIDE. [Concomitant]
     Active Substance: FUROSEMIDE
     Indication: OEDEMA
     Dates: start: 2017, end: 2019
  5. METHYLPREDNISOLONE. [Concomitant]
     Active Substance: METHYLPREDNISOLONE
  6. MEPERIDINE [Concomitant]
     Active Substance: MEPERIDINE
  7. LOSARTAN. [Concomitant]
     Active Substance: LOSARTAN
  8. CARVEDILOL. [Concomitant]
     Active Substance: CARVEDILOL
  9. LEVEMIR [Concomitant]
     Active Substance: INSULIN DETEMIR
  10. FAMOTIDINE. [Concomitant]
     Active Substance: FAMOTIDINE
  11. PRILOSEC OTC [Suspect]
     Active Substance: OMEPRAZOLE MAGNESIUM
     Indication: GASTROOESOPHAGEAL REFLUX DISEASE
     Route: 048
     Dates: start: 2010, end: 2018
  12. PREVACID [Suspect]
     Active Substance: LANSOPRAZOLE
     Indication: GASTROOESOPHAGEAL REFLUX DISEASE
     Route: 065
     Dates: start: 2010, end: 2014
  13. METOCLOPRAMIDE. [Concomitant]
     Active Substance: METOCLOPRAMIDE
  14. NIFEDIPINE. [Concomitant]
     Active Substance: NIFEDIPINE
  15. NOVOLOG [Concomitant]
     Active Substance: INSULIN ASPART
  16. NEXIUM [Suspect]
     Active Substance: ESOMEPRAZOLE MAGNESIUM
     Indication: GASTROOESOPHAGEAL REFLUX DISEASE
     Route: 048
     Dates: start: 2010, end: 2014
  17. HYDROCODONE/ACETAMINOPHEN [Concomitant]
     Active Substance: ACETAMINOPHEN\HYDROCODONE
  18. RANITIDINE. [Concomitant]
     Active Substance: RANITIDINE
  19. CLINDAMYCIN. [Concomitant]
     Active Substance: CLINDAMYCIN
  20. TUMS [Concomitant]
     Active Substance: CALCIUM CARBONATE
  21. CLONIDINE. [Concomitant]
     Active Substance: CLONIDINE
  22. VIAGRA [Concomitant]
     Active Substance: SILDENAFIL CITRATE
  23. OMEPRAZOLE. [Suspect]
     Active Substance: OMEPRAZOLE
     Indication: GASTROOESOPHAGEAL REFLUX DISEASE
     Dosage: GENERIC
     Route: 065
     Dates: start: 2014, end: 2018
  24. PRAVASTATIN. [Concomitant]
     Active Substance: PRAVASTATIN
     Indication: BLOOD CHOLESTEROL ABNORMAL
     Dates: start: 2015, end: 2019
  25. PROMETHAZINE [Concomitant]
     Active Substance: PROMETHAZINE HYDROCHLORIDE
  26. ONDASETRON [Concomitant]
     Active Substance: ONDANSETRON
  27. SUCRALFATE. [Concomitant]
     Active Substance: SUCRALFATE
  28. HUMALOG [Concomitant]
     Active Substance: INSULIN LISPRO

REACTIONS (1)
  - Chronic kidney disease [Unknown]

NARRATIVE: CASE EVENT DATE: 2017
